FAERS Safety Report 18093567 (Version 1)
Quarter: 2020Q3

REPORT INFORMATION
  Report Type: Spontaneous
  Country: GB (occurrence: GB)
  Receive Date: 20200730
  Receipt Date: 20200730
  Transmission Date: 20201103
  Serious: Yes (Other)
  Sender: FDA-Public Use
  Company Number: GB-PFIZER INC-2020288576

PATIENT
  Age: 51 Year
  Sex: Female
  Weight: 64.86 kg

DRUGS (3)
  1. PROGESTERONE. [Concomitant]
     Active Substance: PROGESTERONE
     Dosage: UNK
  2. ESTRADIOL. [Concomitant]
     Active Substance: ESTRADIOL
     Dosage: UNK
  3. CHAMPIX [Suspect]
     Active Substance: VARENICLINE TARTRATE
     Indication: SMOKING CESSATION THERAPY
     Dosage: 0.5 ? 1 MG
     Route: 048
     Dates: start: 20200702, end: 20200710

REACTIONS (5)
  - Affective disorder [Recovering/Resolving]
  - Anxiety [Recovering/Resolving]
  - Depersonalisation/derealisation disorder [Recovering/Resolving]
  - Depression [Recovering/Resolving]
  - Anger [Recovering/Resolving]

NARRATIVE: CASE EVENT DATE: 20200702
